FAERS Safety Report 7773093-1 (Version None)
Quarter: 2011Q3

REPORT INFORMATION
  Report Type: 
  Country: None (occurrence: None)
  Receive Date: 20110922
  Receipt Date: 20100902
  Transmission Date: 20111222
  Serious: Yes (Other)
  Sender: FDA-Public Use
  Company Number: US-ASTRAZENECA-2007UW09446

PATIENT
  Age: 34 Year
  Sex: Female
  Weight: 108 kg

DRUGS (20)
  1. SEROQUEL [Suspect]
     Dosage: 25MG-250MG
     Route: 048
     Dates: start: 20050331
  2. ATIVAN [Concomitant]
     Dosage: 1 MG-5 MG
     Dates: start: 20050818, end: 20071218
  3. LEVAQUIN [Concomitant]
  4. OXYCODONE HCL [Concomitant]
  5. IBUPROFEN [Concomitant]
  6. SEROQUEL [Suspect]
     Indication: DEPRESSION
     Dosage: 25-50 MG
     Route: 048
     Dates: start: 20030101, end: 20050301
  7. SEROQUEL [Suspect]
     Route: 048
     Dates: start: 20030101, end: 20060101
  8. NIFEDIPINE [Concomitant]
  9. SEROQUEL [Suspect]
     Indication: MOOD SWINGS
     Dosage: 25-50 MG
     Route: 048
     Dates: start: 20030101, end: 20050301
  10. SEROQUEL [Suspect]
     Dosage: 25MG-250MG
     Route: 048
     Dates: start: 20050331
  11. METFORMIN [Concomitant]
  12. SEROQUEL [Suspect]
     Route: 048
     Dates: start: 20030101, end: 20060101
  13. LIPITOR [Concomitant]
  14. FAMOTIDINE [Concomitant]
  15. WELLBUTRIN [Concomitant]
  16. FLEXERIL [Concomitant]
  17. TRAZODONE HYDROCHLORIDE [Concomitant]
  18. EFFEXOR [Concomitant]
     Dosage: 75-150 MG
     Dates: start: 20031026, end: 20050915
  19. LAMICTAL [Concomitant]
  20. NAPROXEN [Concomitant]

REACTIONS (3)
  - NEUROLEPTIC MALIGNANT SYNDROME [None]
  - DIABETES MELLITUS [None]
  - OBESITY [None]
